FAERS Safety Report 24845870 (Version 1)
Quarter: 2025Q1

REPORT INFORMATION
  Report Type: Spontaneous
  Country: US (occurrence: US)
  Receive Date: 20250115
  Receipt Date: 20250115
  Transmission Date: 20250409
  Serious: No
  Sender: JOHNSON AND JOHNSON
  Company Number: US-JNJFOC-20250129674

PATIENT
  Age: 32 Year
  Sex: Female
  Weight: 91.63 kg

DRUGS (3)
  1. USTEKINUMAB [Suspect]
     Active Substance: USTEKINUMAB
     Indication: Inflammatory bowel disease
     Route: 058
  2. BONJESTA [Concomitant]
     Active Substance: DOXYLAMINE SUCCINATE\PYRIDOXINE HYDROCHLORIDE
     Route: 048
     Dates: start: 20240714
  3. THERANATAL CORE [Concomitant]
     Route: 048
     Dates: start: 20240714

REACTIONS (1)
  - Paternal exposure during pregnancy [Not Recovered/Not Resolved]
